FAERS Safety Report 4912763-7 (Version None)
Quarter: 2006Q1

REPORT INFORMATION
  Report Type: 
  Country: None (occurrence: None)
  Receive Date: 20060213
  Receipt Date: 20060130
  Transmission Date: 20060701
  Serious: Yes (Death, Hospitalization)
  Sender: FDA-Public Use
  Company Number: 220769

PATIENT
  Age: 56 Year
  Weight: 94 kg

DRUGS (5)
  1. MABTHERA              (RITUXIMAB) [Suspect]
     Indication: CHRONIC LYMPHOCYTIC LEUKAEMIA
     Dosage: 1045 MG, INTRAVENOUS
     Route: 042
     Dates: start: 20051227
  2. MABTHERA                (RITUXIMAB) [Suspect]
  3. CYCLOPHOSPHAMIDE [Suspect]
     Indication: CHRONIC LYMPHOCYTIC LEUKAEMIA
     Dosage: 500 MG, INTRAVENOUS
     Route: 042
     Dates: start: 20051227
  4. FLUDARABINE PHOSPHATE [Suspect]
     Indication: CHRONIC LYMPHOCYTIC LEUKAEMIA
     Dosage: 50 MG, INTRAVENOUS
     Route: 042
     Dates: start: 20051227
  5. CARDIAC MEDICATION NOS (CARDIAC MEDICATION NOS) [Concomitant]

REACTIONS (14)
  - ANORECTAL DISORDER [None]
  - ATRIAL FIBRILLATION [None]
  - DIALYSIS [None]
  - FEBRILE NEUTROPENIA [None]
  - GRANULOCYTOPENIA [None]
  - HEPATIC FAILURE [None]
  - MULTI-ORGAN FAILURE [None]
  - NAUSEA [None]
  - PATHOGEN RESISTANCE [None]
  - PSEUDOMONAS INFECTION [None]
  - RENAL FAILURE [None]
  - SEPTIC SHOCK [None]
  - SUDDEN DEATH [None]
  - TREMOR [None]
